FAERS Safety Report 23792945 (Version 1)
Quarter: 2024Q2

REPORT INFORMATION
  Report Type: Report from Study
  Country: US (occurrence: US)
  Receive Date: 20240429
  Receipt Date: 20240429
  Transmission Date: 20240715
  Serious: No
  Sender: FDA-Public Use
  Company Number: US-ACADIA PHARMACEUTICALS INC.-ACA-2024-PIM-001709

PATIENT
  Sex: Female

DRUGS (2)
  1. NUPLAZID [Suspect]
     Active Substance: PIMAVANSERIN TARTRATE
     Indication: Parkinson^s disease psychosis
     Dosage: 34 MILLIGRAM, QD
     Route: 048
  2. ATIVAN [Suspect]
     Active Substance: LORAZEPAM

REACTIONS (5)
  - Tremor [Not Recovered/Not Resolved]
  - Limb discomfort [Not Recovered/Not Resolved]
  - Ill-defined disorder [Unknown]
  - Gait disturbance [Not Recovered/Not Resolved]
  - Hallucination [Not Recovered/Not Resolved]
